FAERS Safety Report 13583375 (Version 1)
Quarter: 2017Q2

REPORT INFORMATION
  Report Type: Spontaneous
  Country: CA (occurrence: CA)
  Receive Date: 20170525
  Receipt Date: 20170525
  Transmission Date: 20170830
  Serious: Yes (Other)
  Sender: FDA-Public Use
  Company Number: CA-TEVA-770229ACC

PATIENT
  Age: 49 Year
  Sex: Female
  Weight: 67.65 kg

DRUGS (7)
  1. LOSEC [Concomitant]
     Active Substance: OMEPRAZOLE
  2. MIRENA [Concomitant]
     Active Substance: LEVONORGESTREL
  3. PROCTOSEDYL OINTMENT [Concomitant]
  4. DULOXETINE. [Suspect]
     Active Substance: DULOXETINE
     Indication: PAIN
     Dosage: 60 MILLIGRAM DAILY;
     Route: 048
  5. IMOVANE - TAB 5MG [Concomitant]
  6. DULOXETINE. [Suspect]
     Active Substance: DULOXETINE
     Indication: ANXIETY
  7. DULOXETINE. [Suspect]
     Active Substance: DULOXETINE
     Indication: AFFECTIVE DISORDER

REACTIONS (8)
  - Therapeutic response changed [Unknown]
  - Affect lability [Unknown]
  - Condition aggravated [Unknown]
  - Diarrhoea [Unknown]
  - Vomiting [Unknown]
  - Product substitution issue [Unknown]
  - Hallucination, auditory [Unknown]
  - Tremor [Unknown]
